FAERS Safety Report 13345149 (Version 7)
Quarter: 2017Q2

REPORT INFORMATION
  Report Type: Report from Study
  Country: US (occurrence: US)
  Receive Date: 20170317
  Receipt Date: 20170511
  Transmission Date: 20170830
  Serious: Yes (Hospitalization, Other)
  Sender: FDA-Public Use
  Company Number: US-BAYER-2017-031657

PATIENT
  Age: 79 Year
  Sex: Female
  Weight: 43.08 kg

DRUGS (7)
  1. LETAIRIS [Concomitant]
     Active Substance: AMBRISENTAN
     Dosage: UNK
  2. ADEMPAS [Suspect]
     Active Substance: RIOCIGUAT
     Indication: PULMONARY ARTERIAL HYPERTENSION
     Dosage: 2.5 MG, TID
     Route: 048
  3. COUMADIN [Concomitant]
     Active Substance: WARFARIN SODIUM
     Dosage: UNK
  4. ADEMPAS [Suspect]
     Active Substance: RIOCIGUAT
     Indication: PULMONARY ARTERIAL HYPERTENSION
     Dosage: UNK
     Dates: start: 20160215
  5. ADEMPAS [Suspect]
     Active Substance: RIOCIGUAT
     Indication: PULMONARY ARTERIAL HYPERTENSION
     Dosage: 2.5 MG, TID
     Route: 048
  6. ADEMPAS [Suspect]
     Active Substance: RIOCIGUAT
     Indication: PULMONARY ARTERIAL HYPERTENSION
     Dosage: 2.5 MG, TID
     Route: 048
  7. UPTRAVI [Concomitant]
     Active Substance: SELEXIPAG
     Dosage: 1200 ?G, BID

REACTIONS (21)
  - Fluid retention [None]
  - Blood pressure decreased [Unknown]
  - Headache [Unknown]
  - Feeling abnormal [Unknown]
  - Dyspnoea [Unknown]
  - Diarrhoea [Unknown]
  - Weight decreased [None]
  - Arthralgia [None]
  - Asthenia [None]
  - Drug ineffective [None]
  - Joint stiffness [Unknown]
  - Diarrhoea [Not Recovered/Not Resolved]
  - Fatigue [None]
  - Facial pain [Unknown]
  - Decreased appetite [Not Recovered/Not Resolved]
  - Dysphonia [Unknown]
  - Nausea [Unknown]
  - Pulmonary hypertension [Unknown]
  - Colitis microscopic [Unknown]
  - Malaise [None]
  - Decreased appetite [Unknown]
